FAERS Safety Report 8501127-5 (Version None)
Quarter: 2012Q3

REPORT INFORMATION
  Report Type: 
  Country: None (occurrence: None)
  Receive Date: 20120710
  Receipt Date: 20120703
  Transmission Date: 20120928
  Serious: Yes (Hospitalization)
  Sender: FDA-Public Use
  Company Number: PHHO2011NL16502

PATIENT
  Sex: Male
  Weight: 81.1 kg

DRUGS (6)
  1. ALISKIREN [Suspect]
     Indication: CARDIOVASCULAR DISORDER
     Dosage: UNK
     Route: 048
     Dates: start: 20110520, end: 20110912
  2. ATORVASTATIN [Concomitant]
  3. ESIDRIX [Suspect]
     Indication: CARDIOVASCULAR DISORDER
     Dosage: UNK
     Route: 048
     Dates: start: 20110520, end: 20110912
  4. GLICLAZIDE [Concomitant]
  5. BIGUANIDES [Concomitant]
  6. IRBESARTAN [Concomitant]
     Dosage: 150 MG, UNK

REACTIONS (1)
  - SYNCOPE [None]
